FAERS Safety Report 5224963-X (Version None)
Quarter: 2007Q1

REPORT INFORMATION
  Report Type: 
  Country: None (occurrence: None)
  Receive Date: 20070126
  Receipt Date: 20070115
  Transmission Date: 20070707
  Serious: Yes (Other)
  Sender: FDA-Public Use
  Company Number: GBWYE938222DEC06

PATIENT
  Age: 42 Year
  Sex: Female

DRUGS (3)
  1. EFFEXOR XR [Suspect]
     Dosage: 150 MG 2X PER 1 DAY; OVERDOSE OF 300MG TWICE DAILY
     Route: 048
     Dates: start: 20061201, end: 20061201
  2. EFFEXOR XR [Suspect]
     Dosage: 150 MG 2X PER 1 DAY; OVERDOSE OF 300MG TWICE DAILY
     Route: 048
     Dates: end: 20061201
  3. EFFEXOR XR [Suspect]
     Dosage: 150 MG 2X PER 1 DAY; OVERDOSE OF 300MG TWICE DAILY
     Route: 048
     Dates: start: 20061201

REACTIONS (5)
  - ACCIDENTAL OVERDOSE [None]
  - DIZZINESS [None]
  - HYPERHIDROSIS [None]
  - INCORRECT DOSE ADMINISTERED [None]
  - UNEVALUABLE EVENT [None]
